FAERS Safety Report 19103666 (Version 1)
Quarter: 2021Q2

REPORT INFORMATION
  Report Type: Spontaneous
  Country: US (occurrence: US)
  Receive Date: 20210407
  Receipt Date: 20210407
  Transmission Date: 20210717
  Serious: No
  Sender: FDA-Public Use
  Company Number: US-SA-2021SA113912

PATIENT
  Age: 9 Year
  Sex: Female
  Weight: 33.7 kg

DRUGS (5)
  1. DUPIXENT [Suspect]
     Active Substance: DUPILUMAB
     Indication: DERMATITIS
     Dosage: 200 MG, QOW
     Route: 058
     Dates: start: 202008
  2. VITAMIN D [VITAMIN D NOS] [Concomitant]
     Active Substance: VITAMIN D NOS
     Dosage: UNK
  3. CLARITIN [Concomitant]
     Active Substance: LORATADINE
     Dosage: UNK
  4. PROBIOTIC 10 [Concomitant]
     Active Substance: DIETARY SUPPLEMENT\PROBIOTICS
     Dosage: UNK
  5. CHILDREN^S MULTIVITAMIN [Concomitant]
     Dosage: UNK

REACTIONS (3)
  - Product use in unapproved indication [Unknown]
  - Product dose omission issue [Unknown]
  - Dermatitis [Unknown]

NARRATIVE: CASE EVENT DATE: 202008
